FAERS Safety Report 17720852 (Version 1)
Quarter: 2020Q2

REPORT INFORMATION
  Report Type: Spontaneous
  Country: US (occurrence: US)
  Receive Date: 20200428
  Receipt Date: 20200428
  Transmission Date: 20200714
  Serious: Yes (Other)
  Sender: FDA-Public Use
  Company Number: US-GLAND PHARMA LIMITED-2083291

PATIENT
  Age: 72 Year
  Sex: Male

DRUGS (3)
  1. METOPROLOL TARTRATE. [Suspect]
     Active Substance: METOPROLOL TARTRATE
     Indication: PRODUCT USED FOR UNKNOWN INDICATION
  2. VEMURAFENIB. [Concomitant]
     Active Substance: VEMURAFENIB
  3. AMIODARONE [Suspect]
     Active Substance: AMIODARONE

REACTIONS (1)
  - Nodal arrhythmia [Unknown]
